FAERS Safety Report 16398746 (Version 2)
Quarter: 2019Q2

REPORT INFORMATION
  Report Type: Spontaneous
  Country: US (occurrence: US)
  Receive Date: 20190606
  Receipt Date: 20190611
  Transmission Date: 20190711
  Serious: No
  Sender: FDA-Public Use
  Company Number: US-PFIZER INC-2019234239

PATIENT
  Age: 64 Year
  Sex: Female
  Weight: 98.87 kg

DRUGS (2)
  1. LIOTHYRONINE SODIUM. [Suspect]
     Active Substance: LIOTHYRONINE SODIUM
     Indication: HYPOTHYROIDISM
  2. LIOTHYRONINE SODIUM. [Suspect]
     Active Substance: LIOTHYRONINE SODIUM
     Indication: BASEDOW^S DISEASE
     Dosage: 50 MG, DAILY(2 TABLETS DAILY BY MOUTH ON AN EMPTY STOMACH)
     Route: 048

REACTIONS (12)
  - Thinking abnormal [Unknown]
  - Abnormal dreams [Unknown]
  - Muscle fatigue [Unknown]
  - Intentional product misuse [Unknown]
  - Hyperhidrosis [Unknown]
  - Feeling abnormal [Unknown]
  - Balance disorder [Unknown]
  - Vision blurred [Unknown]
  - Drug ineffective [Unknown]
  - Hypersomnia [Unknown]
  - Fatigue [Unknown]
  - Anxiety [Unknown]
